FAERS Safety Report 6795530-1 (Version None)
Quarter: 2010Q2

REPORT INFORMATION
  Report Type: 
  Country: None (occurrence: None)
  Receive Date: 20100622
  Receipt Date: 20100609
  Transmission Date: 20101027
  Serious: Yes (Other)
  Sender: FDA-Public Use
  Company Number: 2010AL003466

PATIENT
  Age: 57 Year
  Sex: Male

DRUGS (10)
  1. RAMIPRIL [Suspect]
     Indication: DRESSLER'S SYNDROME
     Dosage: 5 MG; PO
     Route: 048
     Dates: start: 20100522, end: 20100524
  2. ACETYLSALICYLIC ACID [Concomitant]
  3. CLOPIDOGREL [Concomitant]
  4. METOPROLOL [Concomitant]
  5. SIMVASTATIN [Concomitant]
  6. METOCLOPRAMIDE [Concomitant]
  7. HEPARIN [Concomitant]
  8. ACETAMINOPHEN [Concomitant]
  9. MORPHINE [Concomitant]
  10. OMNIPAQUE 140 [Concomitant]

REACTIONS (4)
  - DYSPHONIA [None]
  - EYE SWELLING [None]
  - LIP SWELLING [None]
  - URTICARIA [None]
